FAERS Safety Report 6096607-9 (Version None)
Quarter: 2009Q1

REPORT INFORMATION
  Report Type: 
  Country: None (occurrence: None)
  Receive Date: 20090227
  Receipt Date: 20090219
  Transmission Date: 20090719
  Serious: Yes (Hospitalization)
  Sender: FDA-Public Use
  Company Number: US-PURDUE-USA_2009_0037091

PATIENT
  Age: 73 Year
  Sex: Female
  Weight: 49 kg

DRUGS (7)
  1. OXYCODONE HCL [Suspect]
     Indication: DRUG USE FOR UNKNOWN INDICATION
     Dosage: UNK, UNK
  2. RAD001 [Suspect]
     Indication: HEPATIC NEOPLASM MALIGNANT NON-RESECTABLE
     Dosage: 5 MG, DAILY
  3. ALDACTONE [Concomitant]
     Indication: DRUG USE FOR UNKNOWN INDICATION
  4. PROCRIT                            /00909301/ [Concomitant]
     Indication: DRUG USE FOR UNKNOWN INDICATION
  5. NEXIUM [Concomitant]
     Indication: DRUG USE FOR UNKNOWN INDICATION
  6. CARAFATE [Concomitant]
     Indication: DRUG USE FOR UNKNOWN INDICATION
  7. LASIX [Concomitant]
     Indication: DRUG USE FOR UNKNOWN INDICATION

REACTIONS (8)
  - AMMONIA INCREASED [None]
  - ANAEMIA [None]
  - BACK PAIN [None]
  - CONFUSIONAL STATE [None]
  - DRUG EFFECT INCREASED [None]
  - HAEMATOCRIT DECREASED [None]
  - HAEMORRHAGE [None]
  - HEPATIC FAILURE [None]
